FAERS Safety Report 21754418 (Version 1)
Quarter: 2022Q4

REPORT INFORMATION
  Report Type: Spontaneous
  Country: US (occurrence: US)
  Receive Date: 20221220
  Receipt Date: 20221220
  Transmission Date: 20230113
  Serious: Yes (Other)
  Sender: FDA-Public Use
  Company Number: US-PFIZER INC-202201380955

PATIENT
  Age: 70 Year
  Sex: Female
  Weight: 58.97 kg

DRUGS (6)
  1. PAXLOVID [Suspect]
     Active Substance: NIRMATRELVIR\RITONAVIR
     Indication: COVID-19 treatment
     Dosage: UNK, 2X/DAY (300MG/100MG DOSE PACK, TAKES IN MORNING AND EVENING)
     Dates: start: 20221215
  2. DIVALPROEX SODIUM [Concomitant]
     Active Substance: DIVALPROEX SODIUM
     Indication: Seizure
     Dosage: 500 MG, 2X/DAY
     Dates: start: 2002
  3. DULOXETINE [Concomitant]
     Active Substance: DULOXETINE
     Indication: Antidepressant therapy
     Dosage: 60 MG, DAILY
     Dates: start: 2022
  4. LORAZEPAM [Concomitant]
     Active Substance: LORAZEPAM
     Indication: Anxiety
     Dosage: 3 DF, 3X/DAY (0.5MG MORNING AND NOON AND 1MG AT BEDTIME)
     Dates: start: 2022
  5. HYDROXYZINE [Concomitant]
     Active Substance: HYDROXYZINE HYDROCHLORIDE
     Indication: Anxiety
     Dosage: 25 MG, 1X/DAY
     Dates: start: 2022
  6. LAMOTRIGINE [Concomitant]
     Active Substance: LAMOTRIGINE
     Indication: Seizure
     Dosage: 2 DF, 2X/DAY (TAKES 50MG IN MORNING AND 100MG IN EVENING)
     Dates: start: 2017

REACTIONS (2)
  - Somnolence [Not Recovered/Not Resolved]
  - Fatigue [Unknown]

NARRATIVE: CASE EVENT DATE: 20221215
